FAERS Safety Report 14527823 (Version 1)
Quarter: 2018Q1

REPORT INFORMATION
  Report Type: Report from Study
  Country: US (occurrence: US)
  Receive Date: 20180213
  Receipt Date: 20180213
  Transmission Date: 20180509
  Serious: Yes (Death)
  Sender: FDA-Public Use
  Company Number: US-TAKEDA-2018TUS003778

PATIENT
  Sex: Female

DRUGS (1)
  1. PONATINIB [Suspect]
     Active Substance: PONATINIB
     Indication: ACUTE LYMPHOCYTIC LEUKAEMIA
     Dosage: 45 MG, QD
     Route: 048

REACTIONS (5)
  - Infection [Fatal]
  - Angiopathy [Unknown]
  - Dry mouth [Unknown]
  - Constipation [Unknown]
  - Dry skin [Unknown]

NARRATIVE: CASE EVENT DATE: 201709
